FAERS Safety Report 10608166 (Version 1)
Quarter: 2014Q4

REPORT INFORMATION
  Report Type: Other
  Country: IT (occurrence: IT)
  Receive Date: 20141125
  Receipt Date: 20141125
  Transmission Date: 20150529
  Serious: Yes (Other)
  Sender: FDA-Public Use
  Company Number: IT-MYLANLABS-2014M1011305

PATIENT

DRUGS (1)
  1. CLOPIDOGREL [Suspect]
     Active Substance: CLOPIDOGREL BISULFATE
     Indication: MYOCARDIAL ISCHAEMIA
     Dosage: 75 MG DAILY
     Route: 048
     Dates: start: 20140901, end: 20140920

REACTIONS (4)
  - Fatigue [Unknown]
  - Dyspnoea at rest [Unknown]
  - Dry mouth [Unknown]
  - Arthralgia [Unknown]

NARRATIVE: CASE EVENT DATE: 20140918
